FAERS Safety Report 23437362 (Version 1)
Quarter: 2024Q1

REPORT INFORMATION
  Report Type: Spontaneous
  Country: US (occurrence: US)
  Receive Date: 20240124
  Receipt Date: 20240124
  Transmission Date: 20240409
  Serious: Yes (Hospitalization)
  Sender: FDA-Public Use
  Company Number: US-MYLANLABS-2024M1006506

PATIENT
  Age: 41 Year
  Sex: Female

DRUGS (6)
  1. MAGNESIUM [Suspect]
     Active Substance: MAGNESIUM
     Indication: Hypocalcaemia
     Dosage: UNK
     Route: 048
  2. MAGNESIUM [Suspect]
     Active Substance: MAGNESIUM
     Indication: Hypomagnesaemia
  3. CALCIUM [Suspect]
     Active Substance: CALCIUM
     Indication: Hypocalcaemia
     Dosage: UNK
     Route: 048
  4. CALCITRIOL [Suspect]
     Active Substance: CALCITRIOL
     Indication: Hypocalcaemia
     Dosage: UNK
     Route: 048
  5. VITAMIN D [Suspect]
     Active Substance: VITAMIN D NOS
     Indication: Hypocalcaemia
     Dosage: UNK
     Route: 048
  6. CALCIUM GLUCONATE [Concomitant]
     Active Substance: CALCIUM GLUCONATE
     Indication: Hypocalcaemia
     Dosage: UNK
     Route: 042

REACTIONS (1)
  - Drug intolerance [Unknown]
